FAERS Safety Report 16623518 (Version 2)
Quarter: 2019Q3

REPORT INFORMATION
  Report Type: Spontaneous
  Country: FR (occurrence: FR)
  Receive Date: 20190724
  Receipt Date: 20190807
  Transmission Date: 20191004
  Serious: Yes (Other)
  Sender: FDA-Public Use
  Company Number: FR-TEVA-2018-FR-967111

PATIENT
  Sex: Female

DRUGS (2)
  1. EFFENTORA 400 MCG [Suspect]
     Active Substance: FENTANYL CITRATE
     Indication: PRODUCT USED FOR UNKNOWN INDICATION
     Dosage: 12 DOSAGE FORMS DAILY;
     Route: 065
     Dates: start: 2018
  2. MORPHINE [Concomitant]
     Active Substance: MORPHINE
     Dosage: CONTINUOUS LONG-TERM TREATMENT

REACTIONS (5)
  - Drug dependence [Unknown]
  - Gingivitis [Unknown]
  - Tooth loss [Recovered/Resolved with Sequelae]
  - Hyperaesthesia teeth [Recovered/Resolved with Sequelae]
  - Product use in unapproved indication [Unknown]

NARRATIVE: CASE EVENT DATE: 2018
